FAERS Safety Report 24213393 (Version 2)
Quarter: 2024Q4

REPORT INFORMATION
  Report Type: Spontaneous
  Country: CO (occurrence: CO)
  Receive Date: 20240815
  Receipt Date: 20241007
  Transmission Date: 20250114
  Serious: No
  Sender: PFIZER
  Company Number: CO-PFIZER INC-PV202400101656

PATIENT
  Sex: Female

DRUGS (1)
  1. GENOTROPIN [Suspect]
     Active Substance: SOMATROPIN
     Dosage: 1.0 MG, DAILY
     Route: 058

REACTIONS (2)
  - Accidental exposure to product [Unknown]
  - Exposure via skin contact [Unknown]
